FAERS Safety Report 12620487 (Version 1)
Quarter: 2016Q3

REPORT INFORMATION
  Report Type: Report from Study
  Country: US (occurrence: US)
  Receive Date: 20160804
  Receipt Date: 20160804
  Transmission Date: 20161109
  Serious: Yes (Other)
  Sender: FDA-Public Use
  Company Number: US-AMGEN-USASL2016099085

PATIENT
  Age: 65 Year
  Sex: Female

DRUGS (1)
  1. ENBREL [Suspect]
     Active Substance: ETANERCEPT
     Indication: RHEUMATOID ARTHRITIS
     Dosage: 50 MG, WEEKLY
     Route: 065
     Dates: start: 20141020

REACTIONS (9)
  - Haemoglobin abnormal [Unknown]
  - Red blood cell abnormality [Unknown]
  - Chest pain [Unknown]
  - Feeling abnormal [Unknown]
  - Gastrointestinal haemorrhage [Unknown]
  - Dyspnoea [Unknown]
  - White blood cell disorder [Unknown]
  - Oesophageal haemorrhage [Unknown]
  - Chest discomfort [Unknown]

NARRATIVE: CASE EVENT DATE: 20160729
